FAERS Safety Report 7491342-4 (Version None)
Quarter: 2011Q2

REPORT INFORMATION
  Report Type: 
  Country: None (occurrence: None)
  Receive Date: 20110519
  Receipt Date: 20110510
  Transmission Date: 20111010
  Serious: Yes (Hospitalization, Other)
  Sender: FDA-Public Use
  Company Number: US-ASTRAZENECA-2011SE01992

PATIENT
  Age: 43 Year
  Sex: Female

DRUGS (2)
  1. NEXIUM [Suspect]
     Route: 048
  2. DOXYCYCLINE [Concomitant]

REACTIONS (11)
  - DYSPNOEA [None]
  - ENDOSCOPY [None]
  - DRUG DOSE OMISSION [None]
  - GASTROOESOPHAGEAL REFLUX DISEASE [None]
  - PYREXIA [None]
  - APPARENT DEATH [None]
  - FATIGUE [None]
  - GASTRIC ULCER [None]
  - VOMITING [None]
  - PNEUMONIA FUNGAL [None]
  - ULCER [None]
